FAERS Safety Report 18897837 (Version 3)
Quarter: 2021Q1

REPORT INFORMATION
  Report Type: Spontaneous
  Country: FR (occurrence: FR)
  Receive Date: 20210216
  Receipt Date: 20210310
  Transmission Date: 20210420
  Serious: Yes (Other)
  Sender: FDA-Public Use
  Company Number: FR-AMGEN-FRASP2021023315

PATIENT
  Age: 57 Year
  Sex: Male

DRUGS (4)
  1. NPLATE [Suspect]
     Active Substance: ROMIPLOSTIM
     Indication: PRODUCT USED FOR UNKNOWN INDICATION
     Dosage: 4 MICROGRAM/KILOGRAM, QWK
     Route: 065
     Dates: start: 202011
  2. DULOXETINE. [Concomitant]
     Active Substance: DULOXETINE
  3. ARIPIPRAZOLE. [Concomitant]
     Active Substance: ARIPIPRAZOLE
  4. EXJADE [Concomitant]
     Active Substance: DEFERASIROX

REACTIONS (3)
  - Renal impairment [Recovering/Resolving]
  - Hepatitis cholestatic [Not Recovered/Not Resolved]
  - Thrombocytopenia [Recovering/Resolving]
